FAERS Safety Report 18148088 (Version 4)
Quarter: 2021Q1

REPORT INFORMATION
  Report Type: Report from Study
  Country: IE (occurrence: IE)
  Receive Date: 20200813
  Receipt Date: 20210107
  Transmission Date: 20210419
  Serious: Yes (Other)
  Sender: FDA-Public Use
  Company Number: IE-VERTEX PHARMACEUTICALS-2020-015819

PATIENT
  Age: 16 Year
  Sex: Female
  Weight: 54 kg

DRUGS (13)
  1. VX?659 [Suspect]
     Active Substance: BAMOCAFTOR
     Indication: CYSTIC FIBROSIS
     Dosage: 2 TABS 120MG 659/ 50MG TEZACAFTOR/ 75MG IVACAFTOR AM
     Route: 048
     Dates: start: 20190108, end: 20200723
  2. LEVEMIR [Concomitant]
     Active Substance: INSULIN DETEMIR
     Indication: TYPE 1 DIABETES MELLITUS
     Dosage: 15 INTERNATIONAL UNIT, QD
     Route: 058
     Dates: start: 2011
  3. SODIUM CHLORIDE. [Concomitant]
     Active Substance: SODIUM CHLORIDE
     Indication: SECRETION DISCHARGE
     Dosage: 4 ML NEBULISED
     Dates: start: 201710
  4. VX?661/VX?770 [Suspect]
     Active Substance: IVACAFTOR\TEZACAFTOR
     Indication: CYSTIC FIBROSIS
     Dosage: 1 TAB 150MG IVACAFTOR PM
     Route: 048
     Dates: start: 20190108, end: 20200723
  5. SALBUTAMOL [Concomitant]
     Active Substance: ALBUTEROL
     Indication: SECRETION DISCHARGE
     Dosage: 5 MG, BID NEBULIZED
     Dates: start: 20040608
  6. NOVORAPID [Concomitant]
     Active Substance: INSULIN ASPART
     Indication: TYPE 1 DIABETES MELLITUS
     Dosage: 2?6 IU
     Route: 058
     Dates: start: 2011
  7. CREON [Concomitant]
     Active Substance: PANCRELIPASE AMYLASE\PANCRELIPASE LIPASE\PANCRELIPASE PROTEASE
     Indication: PANCREATIC FAILURE
     Dosage: 25000, 15 IU, DAILY
     Route: 048
  8. PULMOZYME [Concomitant]
     Active Substance: DORNASE ALFA
     Indication: SECRETION DISCHARGE
     Dosage: 25 MG, QD NEBULIZED
     Dates: start: 20101230
  9. BECLOMETHASONE [BECLOMETASONE] [Concomitant]
     Active Substance: BECLOMETHASONE
     Indication: INFLAMMATION
     Dosage: 100 MICROGRAM, BID
     Dates: start: 20090427
  10. MELATONIN [Concomitant]
     Active Substance: MELATONIN
     Indication: INSOMNIA
     Dosage: 4 MG
     Route: 048
     Dates: start: 20200717
  11. TOBRAMYCIN. [Concomitant]
     Active Substance: TOBRAMYCIN
     Indication: BACTERIAL DISEASE CARRIER
     Dosage: 112 MG, BID
     Dates: start: 20200701
  12. OMEPRAZOLE. [Concomitant]
     Active Substance: OMEPRAZOLE
     Indication: GASTROOESOPHAGEAL REFLUX DISEASE
     Dosage: 20 MG, QD
     Route: 048
     Dates: start: 20110727
  13. HUMULIN M3 [Concomitant]
     Active Substance: INSULIN HUMAN
     Indication: TYPE 1 DIABETES MELLITUS
     Dosage: 28 INTERNATIONAL UNIT, QD
     Route: 058
     Dates: start: 2011

REACTIONS (1)
  - Suicidal ideation [Not Recovered/Not Resolved]

NARRATIVE: CASE EVENT DATE: 202005
